FAERS Safety Report 15281367 (Version 1)
Quarter: 2018Q3

REPORT INFORMATION
  Report Type: Spontaneous
  Country: US (occurrence: US)
  Receive Date: 20180815
  Receipt Date: 20180815
  Transmission Date: 20181010
  Serious: Yes (Other)
  Sender: FDA-Public Use
  Company Number: US-SA-2018SA001880

PATIENT
  Age: 40 Year
  Sex: Female
  Weight: 61.23 kg

DRUGS (3)
  1. TAXOTERE [Suspect]
     Active Substance: DOCETAXEL
     Indication: BREAST CANCER FEMALE
     Dosage: 130 MG, QOW
     Route: 042
     Dates: start: 20050120, end: 20050120
  2. TAXOTERE [Suspect]
     Active Substance: DOCETAXEL
     Dosage: 130 MG, QOW
     Route: 042
     Dates: start: 20050519, end: 20050519
  3. ADRIAMYCIN [Concomitant]
     Active Substance: DOXORUBICIN HYDROCHLORIDE

REACTIONS (2)
  - Alopecia [Recovering/Resolving]
  - Psychological trauma [Unknown]

NARRATIVE: CASE EVENT DATE: 200505
